FAERS Safety Report 25435769 (Version 1)
Quarter: 2025Q2

REPORT INFORMATION
  Report Type: Spontaneous
  Country: US (occurrence: None)
  Receive Date: 20250613
  Receipt Date: 20250613
  Transmission Date: 20250716
  Serious: Yes (Disabling)
  Sender: FDA-CTU
  Company Number: None

PATIENT
  Sex: Male

DRUGS (4)
  1. SERTRALINE HYDROCHLORIDE [Suspect]
     Active Substance: SERTRALINE HYDROCHLORIDE
  2. PAROXETINE [Suspect]
     Active Substance: PAROXETINE
  3. FLUOXETINE [Suspect]
     Active Substance: FLUOXETINE HYDROCHLORIDE
  4. CITALOPRAM [Suspect]
     Active Substance: CITALOPRAM

REACTIONS (15)
  - Withdrawal syndrome [None]
  - Anxiety [None]
  - Nervous system disorder [None]
  - Depression [None]
  - Discomfort [None]
  - Panic attack [None]
  - Suicidal ideation [None]
  - Hallucination [None]
  - Akathisia [None]
  - Pain in jaw [None]
  - Muscle contractions involuntary [None]
  - Rash [None]
  - Ageusia [None]
  - Anosmia [None]
  - Deafness [None]

NARRATIVE: CASE EVENT DATE: 20220929
